APPROVED DRUG PRODUCT: ALIMTA
Active Ingredient: PEMETREXED DISODIUM
Strength: EQ 100MG BASE/VIAL
Dosage Form/Route: POWDER;INTRAVENOUS
Application: N021462 | Product #002 | TE Code: AP
Applicant: ELI LILLY AND CO
Approved: Sep 7, 2007 | RLD: Yes | RS: Yes | Type: RX